FAERS Safety Report 7937616-1 (Version None)
Quarter: 2011Q4

REPORT INFORMATION
  Report Type: 
  Country: None (occurrence: None)
  Receive Date: 20111123
  Receipt Date: 20111118
  Transmission Date: 20120403
  Serious: Yes (Other)
  Sender: FDA-Public Use
  Company Number: US-ABBOTT-05P-163-0392338-00

PATIENT
  Sex: Male
  Weight: 90.8 kg

DRUGS (17)
  1. ACETAMINOPHEN [Concomitant]
     Indication: PRODUCT USED FOR UNKNOWN INDICATION
  2. NIASPAN [Suspect]
     Indication: HIGH DENSITY LIPOPROTEIN DECREASED
     Dosage: AT BEDTIME
     Route: 048
     Dates: start: 20061101
  3. GLUCOPHAGE [Concomitant]
     Indication: DIABETES MELLITUS
  4. TYLENOL W/ CODEINE NO. 3 [Concomitant]
     Indication: PRODUCT USED FOR UNKNOWN INDICATION
  5. ACETYLSALICYLIC ACID ENTERIC COATED [Concomitant]
     Indication: CARDIOVASCULAR EVENT PROPHYLAXIS
  6. COREG [Concomitant]
     Indication: PRODUCT USED FOR UNKNOWN INDICATION
  7. NOVOLIN N [Concomitant]
     Indication: PRODUCT USED FOR UNKNOWN INDICATION
  8. ASPIRIN [Concomitant]
     Indication: PRODUCT USED FOR UNKNOWN INDICATION
  9. FOLIC ACID [Concomitant]
     Indication: SUPPLEMENTATION THERAPY
  10. ATENOLOL [Concomitant]
     Indication: BLOOD PRESSURE
  11. CRESTOR [Concomitant]
     Indication: PRODUCT USED FOR UNKNOWN INDICATION
  12. EFFRINE [Concomitant]
     Indication: PRODUCT USED FOR UNKNOWN INDICATION
     Dosage: 1 SPRAY
  13. AVANTIA [Concomitant]
     Indication: DIABETES MELLITUS
  14. COZAAR [Concomitant]
     Indication: BLOOD PRESSURE
  15. BENADRYL [Concomitant]
     Indication: PRODUCT USED FOR UNKNOWN INDICATION
     Dosage: 1/2 TAB
  16. NOVOLIN R [Concomitant]
     Indication: PRODUCT USED FOR UNKNOWN INDICATION
  17. NIASPAN [Suspect]
     Indication: LOW DENSITY LIPOPROTEIN INCREASED

REACTIONS (2)
  - FLUSHING [None]
  - CORONARY ARTERY BYPASS [None]
